FAERS Safety Report 13231222 (Version 1)
Quarter: 2017Q1

REPORT INFORMATION
  Report Type: Spontaneous
  Country: US (occurrence: US)
  Receive Date: 20170214
  Receipt Date: 20170214
  Transmission Date: 20170428
  Serious: No
  Sender: FDA-Public Use
  Company Number: US-TAKEDA-2017TUS003075

PATIENT
  Age: 52 Year
  Sex: Male
  Weight: 97.52 kg

DRUGS (2)
  1. DEXILANT [Suspect]
     Active Substance: DEXLANSOPRAZOLE
     Indication: BARRETT^S OESOPHAGUS
     Dosage: 60 MG, QD
     Route: 048
     Dates: start: 20161212, end: 20170205
  2. DEXILANT [Suspect]
     Active Substance: DEXLANSOPRAZOLE
     Indication: ULCER

REACTIONS (6)
  - Off label use [Recovered/Resolved]
  - Eye pain [Recovered/Resolved]
  - Blood urine present [Unknown]
  - Nephrolithiasis [Unknown]
  - Arthralgia [Unknown]
  - Feeling abnormal [Recovered/Resolved]

NARRATIVE: CASE EVENT DATE: 20161212
